FAERS Safety Report 8827353 (Version 1)
Quarter: 2012Q4

REPORT INFORMATION
  Report Type: 
  Country: US (occurrence: US)
  Receive Date: 20121005
  Receipt Date: 20121005
  Transmission Date: 20130627
  Serious: No
  Sender: FDA-Public Use
  Company Number: US-BRISTOL-MYERS SQUIBB COMPANY-16130338

PATIENT
  Age: 84 Year
  Sex: Female

DRUGS (1)
  1. AVAPRO [Suspect]
     Dosage: 1999,RX:1329109.
     Dates: start: 199803

REACTIONS (1)
  - Palpitations [Unknown]
